FAERS Safety Report 11338069 (Version 1)
Quarter: 2015Q3

REPORT INFORMATION
  Report Type: Spontaneous
  Country: US (occurrence: US)
  Receive Date: 20150803
  Receipt Date: 20150803
  Transmission Date: 20151125
  Serious: No
  Sender: FDA-Public Use
  Company Number: US-ELI_LILLY_AND_COMPANY-US201006001085

PATIENT
  Age: 59 Year
  Sex: Female

DRUGS (3)
  1. LUVOX [Concomitant]
     Active Substance: FLUVOXAMINE MALEATE
  2. ZYPREXA [Suspect]
     Active Substance: OLANZAPINE
     Dosage: 400 MG, DAILY (1/D)
     Dates: start: 20100516
  3. ZYPREXA [Suspect]
     Active Substance: OLANZAPINE
     Indication: ANXIETY
     Dates: start: 20100416

REACTIONS (3)
  - Euphoric mood [Unknown]
  - Prescribed overdose [Unknown]
  - Drug ineffective [Unknown]
